FAERS Safety Report 8623770-5 (Version None)
Quarter: 2012Q3

REPORT INFORMATION
  Report Type: 
  Country: None (occurrence: None)
  Receive Date: 20120827
  Receipt Date: 20120816
  Transmission Date: 20120928
  Serious: Yes (Hospitalization)
  Sender: FDA-Public Use
  Company Number: DE-B.I. PHARMACEUTICALS,INC./RIDGEFIELD-2011-RD-00130DE

PATIENT
  Sex: Male
  Weight: 77 kg

DRUGS (2)
  1. BLIND (BI 1356) [Suspect]
     Indication: TYPE 2 DIABETES MELLITUS
     Dates: start: 20110615
  2. TAMSULOSIN HCL [Suspect]
     Indication: BENIGN PROSTATIC HYPERPLASIA
     Dosage: 40 MG
     Route: 048
     Dates: start: 20110701, end: 20110727

REACTIONS (2)
  - BENIGN PROSTATIC HYPERPLASIA [None]
  - URINARY TRACT INFECTION [None]
